FAERS Safety Report 21349581 (Version 1)
Quarter: 2022Q3

REPORT INFORMATION
  Report Type: Spontaneous
  Country: US (occurrence: None)
  Receive Date: 20220916
  Receipt Date: 20220916
  Transmission Date: 20221027
  Serious: Yes (Disabling, Other)
  Sender: FDA-Public Use
  Company Number: None

PATIENT
  Age: 29 Year
  Sex: Female
  Weight: 60.75 kg

DRUGS (2)
  1. HYALURONIDASE (HUMAN RECOMBINANT)\RITUXIMAB [Suspect]
     Active Substance: HYALURONIDASE (HUMAN RECOMBINANT)\RITUXIMAB
     Indication: Dermal filler injection
     Dosage: OTHER STRENGTH : UNITS;?
     Route: 042
  2. VALIUM [Concomitant]
     Active Substance: DIAZEPAM

REACTIONS (11)
  - Swelling face [None]
  - Dry eye [None]
  - Periorbital swelling [None]
  - Facial paralysis [None]
  - Skin disorder [None]
  - Pain in jaw [None]
  - Neuralgia [None]
  - Eye pain [None]
  - Ocular discomfort [None]
  - Alopecia [None]
  - Arthralgia [None]

NARRATIVE: CASE EVENT DATE: 20220608
